FAERS Safety Report 4452464-5 (Version None)
Quarter: 2004Q3

REPORT INFORMATION
  Report Type: 
  Country: None (occurrence: None)
  Receive Date: 20040916
  Receipt Date: 20040908
  Transmission Date: 20050211
  Serious: Yes (Death)
  Sender: FDA-Public Use
  Company Number: 200410594BNE

PATIENT
  Sex: Female

DRUGS (4)
  1. ADALAT [Suspect]
     Dosage: 20 MG, TOTAL DAILY DOSE, ORAL
     Route: 048
  2. LISINOPRIL [Concomitant]
  3. SIMVASTATIN [Concomitant]
  4. ADALAT LA 20 [Concomitant]

REACTIONS (1)
  - MYOCARDIAL INFARCTION [None]
